FAERS Safety Report 5012361-3 (Version None)
Quarter: 2006Q2

REPORT INFORMATION
  Report Type: 
  Country: None (occurrence: None)
  Receive Date: 20060411
  Receipt Date: 20051117
  Transmission Date: 20061013
  Serious: Yes (Hospitalization)
  Sender: FDA-Public Use
  Company Number: 05P-163-0317751-00

PATIENT
  Age: 17 Year
  Sex: Female

DRUGS (4)
  1. RITONAVIR ORAL SOLUTION (NORVIR) (RITONAVIR) (RITONAVIR) [Suspect]
     Indication: HIV INFECTION
     Dosage: PER ORAL
     Route: 048
  2. TIPRANAVIR [Suspect]
     Indication: HIV INFECTION
     Dosage: 600 MG, 1 IN 1 D, PER ORAL
     Route: 048
  3. TRUVADA [Concomitant]
  4. DIDANOSINE [Concomitant]

REACTIONS (4)
  - ABDOMINAL PAIN [None]
  - BACK PAIN [None]
  - POLLAKIURIA [None]
  - PRURITUS [None]
